FAERS Safety Report 8542418-1 (Version None)
Quarter: 2012Q3

REPORT INFORMATION
  Report Type: 
  Country: None (occurrence: None)
  Receive Date: 20120726
  Receipt Date: 20120719
  Transmission Date: 20120928
  Serious: Yes (Other)
  Sender: FDA-Public Use
  Company Number: BR-PFIZER INC-2012174707

PATIENT
  Age: 70 Year
  Sex: Male

DRUGS (1)
  1. XALATAN [Suspect]
     Indication: GLAUCOMA
     Dosage: ONE DROP EACH EYE, TWICE A DAY)
     Route: 047

REACTIONS (3)
  - GLAUCOMA [None]
  - OVERDOSE [None]
  - BLINDNESS [None]
